FAERS Safety Report 10954343 (Version 1)
Quarter: 2015Q1

REPORT INFORMATION
  Report Type: Spontaneous
  Country: DE (occurrence: DE)
  Receive Date: 20150325
  Receipt Date: 20150325
  Transmission Date: 20150721
  Serious: Yes (Death, Life-Threatening, Congenital Anomaly)
  Sender: FDA-Public Use
  Company Number: GXKR2015DE001674

PATIENT

DRUGS (3)
  1. FOLSAEURE [Concomitant]
     Active Substance: FOLIC ACID
     Indication: PROPHYLAXIS OF NEURAL TUBE DEFECT
     Route: 064
  2. YASMIN [Concomitant]
     Active Substance: DROSPIRENONE\ETHINYL ESTRADIOL
     Indication: ORAL CONTRACEPTION
     Dosage: MATERNAL DOSE. 3 MG PER DAY
     Route: 064
  3. LAMOTRIGINE. [Suspect]
     Active Substance: LAMOTRIGINE
     Indication: EPILEPSY
     Dosage: MATERNAL DOSE: 300 PER DAY;  100 MG - 0 - 200 MG
     Route: 064
     Dates: start: 20131224, end: 20140911

REACTIONS (5)
  - Anomalous pulmonary venous connection [Fatal]
  - Double outlet right ventricle [Fatal]
  - Atrial septal defect [Fatal]
  - Death neonatal [Fatal]
  - Ventricular septal defect [Unknown]

NARRATIVE: CASE EVENT DATE: 20140911
